FAERS Safety Report 8912535 (Version 6)
Quarter: 2014Q2

REPORT INFORMATION
  Report Type: Spontaneous
  Country: US (occurrence: US)
  Receive Date: 20121116
  Receipt Date: 20140522
  Transmission Date: 20141212
  Serious: Yes (Disabling)
  Sender: FDA-Public Use
  Company Number: US-009507513-1211USA003008

PATIENT
  Sex: Male

DRUGS (1)
  1. PROPECIA [Suspect]
     Indication: ALOPECIA
     Dosage: 1 MG, QD
     Route: 048
     Dates: start: 19990527, end: 20120410

REACTIONS (17)
  - Emotional distress [Unknown]
  - Anxiety [Unknown]
  - Sexual dysfunction [Unknown]
  - Waist circumference increased [Unknown]
  - Blood testosterone decreased [Unknown]
  - Weight increased [Unknown]
  - Erectile dysfunction [Unknown]
  - Ejaculation disorder [Unknown]
  - Semen volume decreased [Unknown]
  - Gynaecomastia [Unknown]
  - Herpes zoster [Unknown]
  - Post herpetic neuralgia [Unknown]
  - Hernia repair [Unknown]
  - Dysplastic naevus [Unknown]
  - Seborrhoeic keratosis [Unknown]
  - Capillaritis [Unknown]
  - Tinnitus [Unknown]
